FAERS Safety Report 14847937 (Version 4)
Quarter: 2018Q2

REPORT INFORMATION
  Report Type: Report from Study
  Country: IT (occurrence: IT)
  Receive Date: 20180504
  Receipt Date: 20180622
  Transmission Date: 20180711
  Serious: Yes (Hospitalization)
  Sender: FDA-Public Use
  Company Number: IT-CONCORDIA PHARMACEUTICALS INC.-E2B_00011549

PATIENT
  Age: 87 Year
  Sex: Female

DRUGS (4)
  1. LANOXIN [Suspect]
     Active Substance: DIGOXIN
     Indication: CARDIAC FAILURE
     Route: 048
     Dates: start: 20100101, end: 20180404
  2. QUARK 5 MG COMPRESSE [Concomitant]
     Indication: BLOOD PRESSURE MEASUREMENT
     Route: 048
     Dates: start: 20100101
  3. TORADIUR 10 MG COMPRESSE [Concomitant]
     Active Substance: TORSEMIDE
     Indication: BLOOD PRESSURE MEASUREMENT
     Route: 048
     Dates: start: 20100101
  4. LOBIVON 5 MG COMPRESSE [Concomitant]
     Indication: CARDIAC FAILURE
     Route: 048
     Dates: start: 20100101, end: 20180404

REACTIONS (2)
  - Drop attacks [Recovered/Resolved]
  - Arrhythmia [Recovered/Resolved]

NARRATIVE: CASE EVENT DATE: 20180404
